FAERS Safety Report 4337918-4 (Version None)
Quarter: 2004Q1

REPORT INFORMATION
  Report Type: 
  Country: None (occurrence: None)
  Receive Date: 20040329
  Receipt Date: 20040128
  Transmission Date: 20041129
  Serious: No
  Sender: FDA-Public Use
  Company Number: USA040157899

PATIENT
  Age: 40 Year
  Sex: Male

DRUGS (3)
  1. STRATTERA [Suspect]
     Indication: ATTENTION DEFICIT/HYPERACTIVITY DISORDER
     Dosage: 40 MG/TWICE DAY
     Dates: start: 20040123
  2. PRINIVIL [Concomitant]
  3. CARDURA [Concomitant]

REACTIONS (6)
  - ABNORMAL BEHAVIOUR [None]
  - CONSTIPATION [None]
  - DISINHIBITION [None]
  - DRY MOUTH [None]
  - MOOD SWINGS [None]
  - NAUSEA [None]
